FAERS Safety Report 6686765-7 (Version None)
Quarter: 2010Q2

REPORT INFORMATION
  Report Type: 
  Country: None (occurrence: None)
  Receive Date: 20100419
  Receipt Date: 20100409
  Transmission Date: 20101027
  Serious: Yes (Hospitalization)
  Sender: FDA-Public Use
  Company Number: IT-NOVEN-10IT001300

PATIENT
  Sex: Female

DRUGS (3)
  1. PAROXETINE HCL [Suspect]
     Indication: DEPRESSION
     Dosage: 5 MG, QD, SEE TEXT
     Route: 065
  2. PAROXETINE HCL [Suspect]
     Dosage: 20 MG, QD, SEE TEXT
     Route: 065
  3. UNKNOWN [Concomitant]

REACTIONS (4)
  - DRUG EXPOSURE DURING PREGNANCY [None]
  - GESTATIONAL DIABETES [None]
  - POLYHYDRAMNIOS [None]
  - PREMATURE RUPTURE OF MEMBRANES [None]
